FAERS Safety Report 17970003 (Version 2)
Quarter: 2020Q3

REPORT INFORMATION
  Report Type: Spontaneous
  Country: US (occurrence: US)
  Receive Date: 20200701
  Receipt Date: 20200717
  Transmission Date: 20201103
  Serious: Yes (Other)
  Sender: FDA-Public Use
  Company Number: US-009507513-2006USA008810

PATIENT
  Sex: Female
  Weight: 65.76 kg

DRUGS (5)
  1. VALCHLOR [Suspect]
     Active Substance: MECHLORETHAMINE
     Dosage: UNK
  2. SYEDA [Suspect]
     Active Substance: DROSPIRENONE\ETHINYL ESTRADIOL
     Dosage: UNK
  3. DROSPIRENONE (+) ETHINYL ESTRADIOL [Suspect]
     Active Substance: DROSPIRENONE\ETHINYL ESTRADIOL
     Dosage: UNK
  4. INTRON A [Suspect]
     Active Substance: INTERFERON ALFA-2B
     Indication: CUTANEOUS T-CELL LYMPHOMA STAGE II
     Dosage: 3 MILLILITER, TIW
     Route: 058
     Dates: start: 201810
  5. TRETINOIN. [Suspect]
     Active Substance: TRETINOIN
     Dosage: UNK

REACTIONS (3)
  - Product quality issue [Unknown]
  - Haemorrhage [Unknown]
  - Product use in unapproved indication [Unknown]
